FAERS Safety Report 5056554-8 (Version None)
Quarter: 2006Q3

REPORT INFORMATION
  Report Type: 
  Country: None (occurrence: None)
  Receive Date: 20060720
  Receipt Date: 20060712
  Transmission Date: 20061208
  Serious: Yes (Hospitalization)
  Sender: FDA-Public Use
  Company Number: ES-BOEHRINGER INGELHEIM PHARMACEUTICALS, INC.-2006-ES-00260ES

PATIENT
  Sex: Male
  Weight: 67 kg

DRUGS (4)
  1. APTIVUS [Suspect]
     Indication: HIV INFECTION
     Dosage: TIPRANAVIR 1000 MG + RITONAVIR 400 MG
     Route: 048
     Dates: start: 20060207
  2. VIREAD [Concomitant]
     Indication: HIV INFECTION
     Route: 048
     Dates: start: 20040326
  3. ZIAGEN [Concomitant]
     Indication: HIV INFECTION
     Route: 048
     Dates: start: 20000427
  4. FUZEON [Concomitant]
     Indication: HIV INFECTION
     Route: 058
     Dates: start: 20060207

REACTIONS (1)
  - LYMPHOMA [None]
